FAERS Safety Report 6699507-6 (Version None)
Quarter: 2010Q2

REPORT INFORMATION
  Report Type: 
  Country: None (occurrence: None)
  Receive Date: 20100427
  Receipt Date: 20100427
  Transmission Date: 20101027
  Serious: No
  Sender: FDA-Public Use
  Company Number: None

PATIENT
  Age: 57 Year
  Sex: Male
  Weight: 68.0396 kg

DRUGS (1)
  1. RAPAFLO [Suspect]
     Dosage: 8MG PER DAY PO
     Route: 048
     Dates: start: 20100415, end: 20100422

REACTIONS (1)
  - RETROGRADE EJACULATION [None]
